FAERS Safety Report 9798178 (Version 2)
Quarter: 2014Q1

REPORT INFORMATION
  Report Type: Spontaneous
  Country: US (occurrence: None)
  Receive Date: 20140102
  Receipt Date: 20140122
  Transmission Date: 20141002
  Serious: Yes (Hospitalization)
  Sender: FDA-Public Use
  Company Number: 2013SGN00829

PATIENT
  Age: 40 Year
  Sex: Male
  Weight: 78 kg

DRUGS (4)
  1. ADCETRIS [Suspect]
     Indication: HODGKIN^S DISEASE
     Route: 042
  2. BENADRYL [Suspect]
     Indication: PREMEDICATION
     Route: 040
  3. PEPCID [Suspect]
     Indication: PREMEDICATION
     Route: 040
  4. DECADRON [Suspect]
     Indication: PREMEDICATION
     Route: 040

REACTIONS (5)
  - Seizure like phenomena [None]
  - Infusion related reaction [None]
  - Burning sensation [None]
  - Lymphadenopathy [None]
  - Rash [None]
